FAERS Safety Report 7152369-5 (Version None)
Quarter: 2010Q4

REPORT INFORMATION
  Report Type: 
  Country: None (occurrence: None)
  Receive Date: 20101123
  Receipt Date: 20101115
  Transmission Date: 20110411
  Serious: Yes (Hospitalization)
  Sender: FDA-Public Use
  Company Number: 108845

PATIENT
  Age: 18 Year
  Sex: Female

DRUGS (2)
  1. CISPLATIN [Suspect]
     Indication: NASOPHARYNGEAL CANCER
     Dosage: 100MG/M2 PER DAY
  2. 5-FLUOROURACIL CHEMOTHERAPY [Concomitant]

REACTIONS (8)
  - FEMORAL ARTERY EMBOLISM [None]
  - INTERMITTENT CLAUDICATION [None]
  - MUCOSAL INFLAMMATION [None]
  - PAIN IN EXTREMITY [None]
  - PARAESTHESIA [None]
  - PERIPHERAL ISCHAEMIA [None]
  - PULSE ABSENT [None]
  - TREATMENT NONCOMPLIANCE [None]
